FAERS Safety Report 6503951-7 (Version None)
Quarter: 2009Q4

REPORT INFORMATION
  Report Type: 
  Country: None (occurrence: None)
  Receive Date: 20091217
  Receipt Date: 20091208
  Transmission Date: 20100525
  Serious: Yes (Other)
  Sender: FDA-Public Use
  Company Number: US-BRISTOL-MYERS SQUIBB COMPANY-14888655

PATIENT

DRUGS (2)
  1. COUMADIN [Suspect]
  2. CELEBREX [Suspect]

REACTIONS (1)
  - KNEE ARTHROPLASTY [None]
